FAERS Safety Report 6057424-9 (Version None)
Quarter: 2009Q1

REPORT INFORMATION
  Report Type: 
  Country: None (occurrence: None)
  Receive Date: 20090126
  Receipt Date: 20090126
  Transmission Date: 20090719
  Serious: Yes (Other)
  Sender: FDA-Public Use
  Company Number: None

PATIENT
  Age: 38 Year
  Sex: Male
  Weight: 83.9154 kg

DRUGS (1)
  1. REQUIP XL [Suspect]
     Indication: PARKINSON'S DISEASE
     Dosage: 16 MG 1 TIME A DAY
     Dates: start: 20061001, end: 20081212

REACTIONS (4)
  - HYPERSEXUALITY [None]
  - MARITAL PROBLEM [None]
  - PATHOLOGICAL GAMBLING [None]
  - SCHIZOAFFECTIVE DISORDER [None]
